FAERS Safety Report 6079438-5 (Version None)
Quarter: 2009Q1

REPORT INFORMATION
  Report Type: 
  Country: None (occurrence: None)
  Receive Date: 20090216
  Receipt Date: 20090212
  Transmission Date: 20090719
  Serious: Yes (Death, Hospitalization)
  Sender: FDA-Public Use
  Company Number: PHHY2009JP01273

PATIENT
  Sex: Male
  Weight: 55 kg

DRUGS (7)
  1. DIOVAN [Suspect]
     Indication: HYPERTENSION
     Dosage: 80 MG, QD
     Route: 048
     Dates: start: 20080417, end: 20080508
  2. ALLOPURINOL [Suspect]
     Indication: HYPERURICAEMIA
     Dosage: 200 MG, UNK
     Route: 048
     Dates: start: 20080402, end: 20080508
  3. METFORMIN HYDROCHLORIDE [Concomitant]
     Indication: DIABETES MELLITUS
     Dosage: 750 DF, UNK
     Route: 048
     Dates: start: 20080402, end: 20080508
  4. ALIARON [Concomitant]
     Dosage: 75 DF, UNK
     Route: 048
     Dates: start: 20080402
  5. VOGLIBOSE [Concomitant]
     Dosage: 0.9 DF, UNK
     Route: 048
     Dates: start: 20080402
  6. PLAVIX [Concomitant]
     Dosage: 75 DF, UNK
     Route: 048
  7. OLMETEC [Concomitant]
     Dosage: 1 DF, UNK
     Route: 048
     Dates: end: 20080416

REACTIONS (3)
  - AGRANULOCYTOSIS [None]
  - ERYTHEMA MULTIFORME [None]
  - SEPTIC SHOCK [None]
